FAERS Safety Report 18592760 (Version 2)
Quarter: 2021Q1

REPORT INFORMATION
  Report Type: Spontaneous
  Country: US (occurrence: US)
  Receive Date: 20201208
  Receipt Date: 20210119
  Transmission Date: 20210419
  Serious: Yes (Other)
  Sender: FDA-Public Use
  Company Number: US-TEVA-2020-US-1856263

PATIENT
  Age: 45 Year
  Sex: Male

DRUGS (6)
  1. LOSARTAN. [Concomitant]
     Active Substance: LOSARTAN
     Indication: PRODUCT USED FOR UNKNOWN INDICATION
     Route: 065
  2. TRAMADOL. [Suspect]
     Active Substance: TRAMADOL
     Indication: BACK PAIN
     Dosage: 300 MILLIGRAM DAILY;
     Route: 065
  3. TRAMADOL. [Suspect]
     Active Substance: TRAMADOL
     Dosage: 1000 MILLIGRAM DAILY;
     Route: 065
  4. HYDROCHLOROTHIAZIDE. [Concomitant]
     Active Substance: HYDROCHLOROTHIAZIDE
     Indication: PRODUCT USED FOR UNKNOWN INDICATION
     Route: 065
  5. HYDROCODONE/PARACETAMOL [Concomitant]
     Active Substance: ACETAMINOPHEN\HYDROCODONE BITARTRATE
     Indication: PRODUCT USED FOR UNKNOWN INDICATION
     Route: 065
  6. TRAMADOL. [Suspect]
     Active Substance: TRAMADOL
     Dosage: 500 MILLIGRAM DAILY;
     Route: 065

REACTIONS (3)
  - Overdose [Unknown]
  - Drug withdrawal syndrome [Recovered/Resolved]
  - Drug use disorder [Unknown]
